FAERS Safety Report 4710431-8 (Version None)
Quarter: 2005Q3

REPORT INFORMATION
  Report Type: 
  Country: None (occurrence: None)
  Receive Date: 20050707
  Receipt Date: 20050622
  Transmission Date: 20060218
  Serious: Yes (Other)
  Sender: FDA-Public Use
  Company Number: US-2005-003229

PATIENT
  Age: 56 Year
  Sex: Female
  Weight: 49.9 kg

DRUGS (6)
  1. BETASERON [Suspect]
     Indication: RELAPSING-REMITTING MULTIPLE SCLEROSIS
     Dosage: 8 MIU, EVERY 2D, SUBCUTANEOUS
     Route: 058
     Dates: start: 20041215, end: 20041229
  2. NEURONTIN [Concomitant]
  3. PAXIL [Concomitant]
  4. AMANTADINE HCL [Concomitant]
  5. ACTONEL [Concomitant]
  6. ALPRAZOLAM (ALPRAZOALM) [Concomitant]

REACTIONS (3)
  - GAMMA-GLUTAMYLTRANSFERASE INCREASED [None]
  - LIVEDO RETICULARIS [None]
  - RED CELL DISTRIBUTION WIDTH INCREASED [None]
